FAERS Safety Report 5266290-0 (Version None)
Quarter: 2007Q1

REPORT INFORMATION
  Report Type: 
  Country: None (occurrence: None)
  Receive Date: 20070315
  Receipt Date: 20070307
  Transmission Date: 20070707
  Serious: Yes (Other)
  Sender: FDA-Public Use
  Company Number: US-AVENTIS-200619890US

PATIENT
  Sex: Female

DRUGS (10)
  1. LOVENOX [Suspect]
     Route: 058
     Dates: start: 20060814
  2. ANAESTHETICS [Concomitant]
  3. ATENOLOL [Concomitant]
  4. DIOVAN HCT [Concomitant]
     Dosage: DOSE: 80/12.5 MG
  5. TRICOR                             /00090101/ [Concomitant]
  6. PRILOSEC                           /00661201/ [Concomitant]
  7. IRON [Concomitant]
     Dosage: DOSE: UNK
  8. ASCORBIC ACID [Concomitant]
     Dosage: DOSE: UNK
  9. CENTRUM                            /00554501/ [Concomitant]
     Dosage: DOSE: UNK
  10. FISH OIL [Concomitant]
     Dosage: DOSE: UNK

REACTIONS (2)
  - PARAPLEGIA [None]
  - SPINAL HAEMATOMA [None]
